FAERS Safety Report 23697704 (Version 1)
Quarter: 2024Q2

REPORT INFORMATION
  Report Type: Spontaneous
  Country: US (occurrence: None)
  Receive Date: 20240401
  Receipt Date: 20240401
  Transmission Date: 20240716
  Serious: No
  Sender: FDA-Public Use
  Company Number: None

PATIENT
  Age: 92 Year
  Weight: 65.32 kg

DRUGS (1)
  1. HEPARIN SODIUM [Suspect]
     Active Substance: HEPARIN SODIUM
     Dosage: STRENGTH: 25000 UNITES/250 ML IV BAG

REACTIONS (4)
  - Dose calculation error [None]
  - Overdose [None]
  - Incorrect drug administration rate [None]
  - Anticoagulation drug level above therapeutic [None]
